FAERS Safety Report 7792166-0 (Version None)
Quarter: 2011Q4

REPORT INFORMATION
  Report Type: 
  Country: None (occurrence: None)
  Receive Date: 20111003
  Receipt Date: 20111003
  Transmission Date: 20120403
  Serious: Yes (Other)
  Sender: FDA-Public Use
  Company Number: None

PATIENT
  Age: 48 Year
  Sex: Female
  Weight: 104.32 kg

DRUGS (1)
  1. PRAMIPEXOLE DIHYDROCHLORIDE [Suspect]
     Indication: RESTLESS LEGS SYNDROME
     Dosage: 1 TO 2 TABLETS
     Route: 048
     Dates: start: 20110929, end: 20110929

REACTIONS (3)
  - SWELLING FACE [None]
  - TONGUE DISORDER [None]
  - OEDEMA PERIPHERAL [None]
